FAERS Safety Report 20437846 (Version 2)
Quarter: 2022Q1

REPORT INFORMATION
  Report Type: Spontaneous
  Country: CN (occurrence: None)
  Receive Date: 20220207
  Receipt Date: 20220215
  Transmission Date: 20220423
  Serious: Yes (Hospitalization)
  Sender: FDA-Public Use
  Company Number: 2022A035539

PATIENT
  Age: 60 Year
  Sex: Male
  Weight: 50 kg

DRUGS (3)
  1. IMFINZI [Suspect]
     Active Substance: DURVALUMAB
     Indication: Non-small cell lung cancer stage III
     Dosage: 500MG/PERIOD, INJECTED ONCE EVERY 21 DAYS
     Route: 042
     Dates: start: 20211002
  2. IMFINZI [Suspect]
     Active Substance: DURVALUMAB
     Indication: Non-small cell lung cancer stage III
     Dosage: INJECTED ONCE AT INTERVAL OF ONE MONTH
     Route: 042
  3. IMFINZI [Suspect]
     Active Substance: DURVALUMAB
     Indication: Non-small cell lung cancer stage III
     Dosage: DELAYED FOR A WEEK OR 10-20 DAYS
     Route: 042

REACTIONS (5)
  - Leukopenia [Unknown]
  - Decreased appetite [Recovering/Resolving]
  - Hypothyroidism [Unknown]
  - Hyperthyroidism [Unknown]
  - Sinusitis [Recovered/Resolved]
